FAERS Safety Report 20781663 (Version 1)
Quarter: 2022Q2

REPORT INFORMATION
  Report Type: Report from Study
  Country: FR (occurrence: FR)
  Receive Date: 20220504
  Receipt Date: 20220504
  Transmission Date: 20220721
  Serious: Yes (Life-Threatening, Other)
  Sender: FDA-Public Use
  Company Number: FR-SA-SAC20220113000820

PATIENT
  Age: 56 Year
  Sex: Female
  Weight: 53 kg

DRUGS (24)
  1. CARFILZOMIB [Suspect]
     Active Substance: CARFILZOMIB
     Indication: Plasma cell myeloma
     Dosage: 40 MILLIGRAM/SQ. METER, QWK
     Route: 065
  2. CARFILZOMIB [Suspect]
     Active Substance: CARFILZOMIB
     Dosage: 31.2 MILLIGRAM, QD
     Route: 065
     Dates: start: 20201119
  3. CARFILZOMIB [Suspect]
     Active Substance: CARFILZOMIB
     Dosage: 87.4 MILLIGRAM, QD
     Route: 065
     Dates: start: 20211230
  4. DEXAMETHASONE [Suspect]
     Active Substance: DEXAMETHASONE
     Indication: Plasma cell myeloma
     Dosage: 40/20 MG (ACCORDING TO AGE) BY ORAL ROUTE, EVERY WEEK
     Route: 048
  5. DEXAMETHASONE [Suspect]
     Active Substance: DEXAMETHASONE
     Dosage: 40 MILLIGRAM, QD
     Route: 065
     Dates: start: 20201119
  6. DEXAMETHASONE [Suspect]
     Active Substance: DEXAMETHASONE
     Dosage: 40 MILLIGRAM, QD
     Route: 065
     Dates: start: 20211209
  7. ISATUXIMAB [Suspect]
     Active Substance: ISATUXIMAB
     Indication: Plasma cell myeloma
     Dosage: 530 MILLIGRAM, QD
     Route: 065
     Dates: start: 20201119
  8. ISATUXIMAB [Suspect]
     Active Substance: ISATUXIMAB
     Dosage: 530 MILLIGRAM, QD
     Route: 065
     Dates: start: 20211230
  9. ISATUXIMAB [Suspect]
     Active Substance: ISATUXIMAB
     Dosage: 10 MILLIGRAM/KILOGRAM, Q2WK
     Route: 065
  10. POMALIDOMIDE [Suspect]
     Active Substance: POMALIDOMIDE
     Indication: Plasma cell myeloma
     Dosage: 4 MILLIGRAM, QD
     Route: 048
     Dates: start: 20201119
  11. POMALIDOMIDE [Suspect]
     Active Substance: POMALIDOMIDE
     Dosage: 4 MILLIGRAM, QD
     Route: 048
     Dates: start: 20220105
  12. BACTRIM [Concomitant]
     Active Substance: SULFAMETHOXAZOLE\TRIMETHOPRIM
     Indication: Pneumonia
     Dosage: UNK
     Route: 065
     Dates: start: 20201119
  13. DAFALGAN CODEINE [Concomitant]
     Active Substance: ACETAMINOPHEN\CODEINE PHOSPHATE
     Indication: Bone pain
     Dosage: UNK
     Dates: start: 20201204
  14. VALACYCLOVIR HYDROCHLORIDE [Concomitant]
     Active Substance: VALACYCLOVIR HYDROCHLORIDE
     Indication: Herpes zoster
     Dosage: UNK
     Dates: start: 20201119
  15. ZOMETA [Concomitant]
     Active Substance: ZOLEDRONIC ACID
     Indication: Hypercalcaemia
     Dosage: UNK
     Dates: start: 20201205
  16. ELIQUIS [Concomitant]
     Active Substance: APIXABAN
     Indication: Deep vein thrombosis
     Dosage: UNK
     Dates: start: 20210105
  17. ENOXAPARIN SODIUM [Concomitant]
     Active Substance: ENOXAPARIN SODIUM
     Indication: Deep vein thrombosis
     Dosage: UNK
     Dates: start: 20201119, end: 20210114
  18. PHLOROGLUCINOL [Concomitant]
     Active Substance: PHLOROGLUCINOL
     Indication: Abdominal distension
     Dosage: UNK
     Dates: start: 20210128, end: 20210211
  19. PRIMPERAN [Concomitant]
     Active Substance: METOCLOPRAMIDE HYDROCHLORIDE
     Indication: Nausea
     Dosage: UNK
     Dates: start: 20201204
  20. COVID-19 VACCINE [Concomitant]
     Indication: COVID-19
     Dosage: UNK
     Dates: start: 202102, end: 202102
  21. COVID-19 VACCINE [Concomitant]
     Dosage: UNK
     Dates: start: 202101, end: 202101
  22. ACETAMINOPHEN [Concomitant]
     Active Substance: ACETAMINOPHEN
     Indication: Arthralgia
     Dosage: UNK
     Dates: start: 20201203
  23. LEUCOVORIN CALCIUM [Concomitant]
     Active Substance: LEUCOVORIN CALCIUM
     Indication: Haematotoxicity
     Dosage: UNK
     Dates: start: 20201119
  24. ALVERINE CITRATE\RACEMETHIONINE [Concomitant]
     Active Substance: ALVERINE CITRATE\RACEMETHIONINE
     Indication: Abdominal distension
     Dosage: UNK
     Dates: start: 20210211, end: 20210422

REACTIONS (3)
  - Lymphopenia [Recovered/Resolved]
  - Lymphopenia [Unknown]
  - Vertebroplasty [Unknown]

NARRATIVE: CASE EVENT DATE: 20220113
